FAERS Safety Report 11754566 (Version 4)
Quarter: 2016Q3

REPORT INFORMATION
  Report Type: Spontaneous
  Country: CL (occurrence: CL)
  Receive Date: 20151119
  Receipt Date: 20160901
  Transmission Date: 20161109
  Serious: Yes (Other)
  Sender: FDA-Public Use
  Company Number: CL-PFIZER INC-2015391012

PATIENT
  Age: 33 Year
  Sex: Female

DRUGS (1)
  1. UPLYSO [Suspect]
     Active Substance: TALIGLUCERASE ALFA
     Indication: GAUCHER^S DISEASE
     Dosage: 3000 IU, EVERY 15 DAYS FOR
     Route: 042
     Dates: start: 20131205

REACTIONS (3)
  - Infusion site discomfort [Recovered/Resolved]
  - Catheter site extravasation [Recovered/Resolved]
  - Pyrexia [Recovered/Resolved]

NARRATIVE: CASE EVENT DATE: 2015
